FAERS Safety Report 6161004-4 (Version None)
Quarter: 2009Q2

REPORT INFORMATION
  Report Type: 
  Country: None (occurrence: None)
  Receive Date: 20090420
  Receipt Date: 20090408
  Transmission Date: 20091009
  Serious: Yes (Hospitalization)
  Sender: FDA-Public Use
  Company Number: US-PFIZER INC-2005166531

PATIENT
  Sex: Male
  Weight: 65.5 kg

DRUGS (21)
  1. BLINDED *PLACEBO [Suspect]
     Indication: HIV INFECTION
     Dosage: UNK
     Dates: start: 20051107, end: 20051211
  2. BLINDED MARAVIROC [Suspect]
     Indication: HIV INFECTION
     Dosage: UNK
     Dates: start: 20051107, end: 20051211
  3. NEUPOGEN [Concomitant]
     Route: 058
  4. PROCRIT [Concomitant]
     Route: 058
     Dates: end: 20051211
  5. NORVIR [Concomitant]
     Route: 048
     Dates: start: 20051108, end: 20051211
  6. EPZICOM [Concomitant]
     Route: 048
     Dates: start: 20051108, end: 20051211
  7. VIREAD [Concomitant]
     Route: 048
     Dates: start: 20051108, end: 20051211
  8. FUZEON [Concomitant]
     Route: 058
     Dates: start: 20051108, end: 20051211
  9. FOSAMPRENAVIR [Concomitant]
     Route: 048
     Dates: start: 20051108, end: 20051211
  10. VIDEX [Concomitant]
     Route: 048
     Dates: start: 20051108, end: 20051211
  11. HUMALOG [Concomitant]
     Route: 058
  12. LANTUS [Concomitant]
     Route: 058
  13. MARINOL [Concomitant]
     Route: 048
     Dates: end: 20051211
  14. SPORANOX [Concomitant]
     Route: 048
     Dates: end: 20051211
  15. FOSCARNET [Concomitant]
     Route: 042
     Dates: end: 20051211
  16. MEPRON [Concomitant]
     Route: 048
     Dates: end: 20051211
  17. BIAXIN [Concomitant]
     Route: 048
     Dates: start: 20051005, end: 20051211
  18. LEVAQUIN [Concomitant]
     Route: 048
     Dates: start: 20051005, end: 20051211
  19. ETHAMBUTOL HCL [Concomitant]
     Route: 048
     Dates: start: 20051005, end: 20051211
  20. LISINOPRIL AND HYDROCHLOROTHIAZIDE [Concomitant]
     Route: 048
  21. METHAMPHETAMINE HYDROCHLORIDE [Concomitant]

REACTIONS (1)
  - HEPATIC FAILURE [None]
